FAERS Safety Report 9056597 (Version 1)
Quarter: 2013Q1

REPORT INFORMATION
  Report Type: Spontaneous
  Country: US (occurrence: US)
  Receive Date: 20130204
  Receipt Date: 20130204
  Transmission Date: 20140127
  Serious: Yes (Other)
  Sender: FDA-Public Use
  Company Number: CHPA2013US001268

PATIENT
  Age: 64 Year
  Sex: Male

DRUGS (5)
  1. TRANSDERM SCOP [Suspect]
     Indication: VERTIGO
     Dosage: 1 DF, Q72H
     Route: 062
     Dates: start: 201301
  2. PROZAC [Concomitant]
     Indication: ANXIETY DISORDER
     Dosage: 20 MG DAILY
     Route: 048
     Dates: start: 1995
  3. LISINOPRIL [Concomitant]
     Indication: HYPERTENSION
     Dosage: 40 MG DAILY
     Route: 048
  4. METFORMIN [Concomitant]
     Indication: DIABETES MELLITUS
     Dosage: 1000 MG, UNK
     Dates: start: 201209
  5. ASPIRIN [Concomitant]
     Indication: JOINT SWELLING

REACTIONS (15)
  - Muscle strain [Unknown]
  - Arthropathy [Recovered/Resolved]
  - Fall [Recovered/Resolved]
  - Balance disorder [Recovered/Resolved]
  - Feeling abnormal [Recovered/Resolved]
  - Off label use [Unknown]
  - Skin fissures [Not Recovered/Not Resolved]
  - Swelling [Unknown]
  - Cerumen impaction [Not Recovered/Not Resolved]
  - Pain in extremity [Unknown]
  - Cough [Unknown]
  - Application site erythema [Not Recovered/Not Resolved]
  - Application site irritation [Not Recovered/Not Resolved]
  - Therapeutic response unexpected [Unknown]
  - Wrong technique in drug usage process [Unknown]
